FAERS Safety Report 10200166 (Version 1)
Quarter: 2014Q2

REPORT INFORMATION
  Report Type: Spontaneous
  Country: US (occurrence: US)
  Receive Date: 20140527
  Receipt Date: 20140527
  Transmission Date: 20141212
  Serious: No
  Sender: FDA-Public Use
  Company Number: US-009507513-1405USA012186

PATIENT
  Sex: Female

DRUGS (2)
  1. DR. SCHOLL^S LIQUID CORN/CALLUS REMOVER [Suspect]
     Indication: HYPERKERATOSIS
     Dosage: UNK UNK, UNKNOWN
     Route: 061
     Dates: start: 2014
  2. DR. SCHOLL^S LIQUID CORN/CALLUS REMOVER [Suspect]
     Dosage: UNK UNK, UNKNOWN
     Route: 061
     Dates: start: 2012

REACTIONS (2)
  - Burning sensation [Unknown]
  - Hyperkeratosis [Unknown]
